FAERS Safety Report 11815775 (Version 2)
Quarter: 2016Q1

REPORT INFORMATION
  Report Type: Spontaneous
  Country: DE (occurrence: DE)
  Receive Date: 20151209
  Receipt Date: 20160208
  Transmission Date: 20160525
  Serious: Yes (Hospitalization)
  Sender: FDA-Public Use
  Company Number: DE-GE HEALTHCARE MEDICAL DIAGNOSTICS-OMPQ-PR-1512S-3132

PATIENT
  Age: 78 Year
  Sex: Male
  Weight: 81 kg

DRUGS (13)
  1. OMNIPAQUE [Suspect]
     Active Substance: IOHEXOL
     Indication: DIAGNOSTIC PROCEDURE
  2. PREGABALIN. [Concomitant]
     Active Substance: PREGABALIN
  3. GLIMEPIRID [Concomitant]
     Active Substance: GLIMEPIRIDE
  4. NEBIVOLOL. [Concomitant]
     Active Substance: NEBIVOLOL
  5. DIASTABOL [Concomitant]
     Active Substance: MIGLITOL
  6. STIOLTO RESPIMAT [Concomitant]
     Active Substance: OLODATEROL HYDROCHLORIDE\TIOTROPIUM BROMIDE MONOHYDRATE
  7. OMNIPAQUE [Suspect]
     Active Substance: IOHEXOL
     Indication: THERAPEUTIC PROCEDURE
  8. BRETARIS [Concomitant]
     Active Substance: ACLIDINIUM BROMIDE
  9. OMNIPAQUE [Suspect]
     Active Substance: IOHEXOL
     Indication: PRODUCT USED FOR UNKNOWN INDICATION
     Route: 065
     Dates: start: 20151123, end: 20151123
  10. DULOXETINE. [Concomitant]
     Active Substance: DULOXETINE
  11. TORASEMID [Concomitant]
     Active Substance: TORSEMIDE
  12. ACETYLSALICYLIC ACID [Concomitant]
     Active Substance: ASPIRIN
  13. TAMSULOSIN [Concomitant]
     Active Substance: TAMSULOSIN

REACTIONS (4)
  - Mallory-Weiss syndrome [Recovering/Resolving]
  - Gastritis haemorrhagic [Recovered/Resolved]
  - Haemoglobin decreased [Recovered/Resolved]
  - Melaena [Recovered/Resolved]

NARRATIVE: CASE EVENT DATE: 20151123
